FAERS Safety Report 17633274 (Version 1)
Quarter: 2020Q2

REPORT INFORMATION
  Report Type: Spontaneous
  Country: US (occurrence: US)
  Receive Date: 20200406
  Receipt Date: 20200406
  Transmission Date: 20200713
  Serious: Yes (Other)
  Sender: FDA-Public Use
  Company Number: US-EYEVANCE PHARMACEUTICALS-2020EYE00041

PATIENT
  Age: 86 Year
  Sex: Female

DRUGS (2)
  1. FLAREX [Suspect]
     Active Substance: FLUOROMETHOLONE ACETATE
     Indication: DRY EYE
     Dosage: UNK
     Route: 047
  2. RESTASIS [Concomitant]
     Active Substance: CYCLOSPORINE
     Route: 047

REACTIONS (4)
  - Lymphoedema [Unknown]
  - Accidental exposure to product [Unknown]
  - Breast cancer stage IV [Unknown]
  - Malaise [Unknown]
